FAERS Safety Report 10618005 (Version 2)
Quarter: 2014Q4

REPORT INFORMATION
  Report Type: Spontaneous
  Country: DE (occurrence: DE)
  Receive Date: 20141201
  Receipt Date: 20141225
  Transmission Date: 20150529
  Serious: Yes (Hospitalization)
  Sender: FDA-Public Use
  Company Number: DE-ABBVIE-14K-062-1313640-00

PATIENT
  Age: 37 Year
  Sex: Male
  Weight: 60 kg

DRUGS (7)
  1. MOVICOL [Concomitant]
     Active Substance: POLYETHYLENE GLYCOL 3350\POTASSIUM CHLORIDE\SODIUM BICARBONATE\SODIUM CHLORIDE
     Indication: PRODUCT USED FOR UNKNOWN INDICATION
  2. DECORTIN [Concomitant]
     Active Substance: PREDNISONE
     Indication: PRODUCT USED FOR UNKNOWN INDICATION
     Dosage: 50MG, REDUCTION BY 10MG/WEEK; FROM 10MG/DAY REDUCTION BY 2.5MG/WEEK
  3. HUMIRA [Suspect]
     Active Substance: ADALIMUMAB
     Indication: COLITIS ULCERATIVE
     Dosage: 160MG/ 80MG
     Route: 058
     Dates: start: 201407
  4. CALCIMAGON D3 [Concomitant]
     Active Substance: CALCIUM\CHOLECALCIFEROL
     Indication: PRODUCT USED FOR UNKNOWN INDICATION
  5. HUMIRA [Suspect]
     Active Substance: ADALIMUMAB
     Indication: COLITIS ULCERATIVE
     Route: 058
     Dates: start: 20140815, end: 20140815
  6. HUMIRA [Suspect]
     Active Substance: ADALIMUMAB
     Route: 058
     Dates: start: 20140829, end: 20140829
  7. HUMIRA [Suspect]
     Active Substance: ADALIMUMAB
     Dosage: ONCE DURING HOSPITALIZATION
     Route: 058
     Dates: start: 20140925, end: 20140925

REACTIONS (15)
  - Chills [Recovered/Resolved with Sequelae]
  - Weight decreased [Unknown]
  - Transaminases increased [Unknown]
  - Drug hypersensitivity [Unknown]
  - General physical health deterioration [Unknown]
  - Blood bilirubin decreased [Unknown]
  - Chronic fatigue syndrome [Unknown]
  - Abdominal pain lower [Recovered/Resolved]
  - Vertigo [Recovered/Resolved with Sequelae]
  - Viral infection [Unknown]
  - Haematochezia [Not Recovered/Not Resolved]
  - Gastroenteritis [Recovered/Resolved with Sequelae]
  - Drug effect incomplete [Recovering/Resolving]
  - Proctitis ulcerative [Unknown]
  - C-reactive protein increased [Unknown]

NARRATIVE: CASE EVENT DATE: 2014
